FAERS Safety Report 7064703-5 (Version None)
Quarter: 2010Q4

REPORT INFORMATION
  Report Type: 
  Country: None (occurrence: None)
  Receive Date: 20101027
  Receipt Date: 20000831
  Transmission Date: 20110411
  Serious: Yes (Congenital Anomaly)
  Sender: FDA-Public Use
  Company Number: FR-ROCHE-244148

PATIENT
  Age: 33 Year
  Sex: Female

DRUGS (1)
  1. LARIAM [Suspect]
     Indication: PRODUCT USED FOR UNKNOWN INDICATION
     Route: 048
     Dates: start: 19980409, end: 19980512

REACTIONS (4)
  - ABORTION INDUCED [None]
  - KLINEFELTER'S SYNDROME [None]
  - MATERNAL DRUGS AFFECTING FOETUS [None]
  - TALIPES [None]
